FAERS Safety Report 8588815-X (Version None)
Quarter: 2012Q3

REPORT INFORMATION
  Report Type: 
  Country: None (occurrence: None)
  Receive Date: 20120813
  Receipt Date: 20120803
  Transmission Date: 20120928
  Serious: Yes (Other)
  Sender: FDA-Public Use
  Company Number: US-JNJFOC-20120414349

PATIENT
  Sex: Female
  Weight: 68.04 kg

DRUGS (15)
  1. EXTRA STRENGTH TYLENOL [Suspect]
     Indication: ARTHRALGIA
     Dosage: PATIENT TOOK 2 PILLS EVERY SIX HOURS ON ALTERNATING DAYS, STOPPED USE A COUPLE MONTHS AGO.
     Route: 048
     Dates: start: 20080101, end: 20110601
  2. CIMETIDINE [Concomitant]
     Indication: GASTROOESOPHAGEAL REFLUX DISEASE
     Route: 065
  3. TYLENOL PM EXTRA STRENGTH [Suspect]
     Indication: ARTHRALGIA
     Dosage: PATIENT TOOK 2 PILLS EVERY SIX HOURS ON ALTERNATING DAYS, STOPPED USE A COUPLE MONTHS AGO.
     Route: 048
  4. VITAMIN D [Concomitant]
     Indication: OSTEOPOROSIS
     Route: 065
  5. ANTIHYPERTENSIVE [Concomitant]
     Indication: HYPERTENSION
     Route: 065
  6. CREON [Concomitant]
     Indication: HOT FLUSH
     Route: 065
  7. UNKNOWN MEDICATION [Concomitant]
     Indication: MIGRAINE
  8. NORVASC [Concomitant]
     Route: 065
  9. VITAMIN D [Concomitant]
     Indication: BONE DISORDER
     Route: 065
  10. PRILOSEC [Concomitant]
     Indication: GASTROOESOPHAGEAL REFLUX DISEASE
     Route: 065
  11. CETIRIZINE [Concomitant]
     Indication: MULTIPLE ALLERGIES
     Dosage: DAILY
     Route: 065
  12. ZANTAC [Concomitant]
     Route: 065
  13. EXTRA STRENGTH TYLENOL [Suspect]
     Dosage: PATIENT TOOK 2 PILLS EVERY SIX HOURS ON ALTERNATING DAYS, STOPPED USE A COUPLE MONTHS AGO.
     Route: 048
     Dates: start: 20080101, end: 20110601
  14. TYLENOL COLD [Suspect]
     Indication: ARTHRALGIA
     Route: 048
  15. ALL OTHER THERAPEUTIC PRODUCTS [Concomitant]

REACTIONS (4)
  - HEPATIC FAILURE [None]
  - INCORRECT DRUG ADMINISTRATION DURATION [None]
  - HEPATIC CIRRHOSIS [None]
  - OFF LABEL USE [None]
